FAERS Safety Report 4948908-2 (Version None)
Quarter: 2006Q1

REPORT INFORMATION
  Report Type: 
  Country: None (occurrence: None)
  Receive Date: 20060321
  Receipt Date: 20060310
  Transmission Date: 20060701
  Serious: Yes (Hospitalization)
  Sender: FDA-Public Use
  Company Number: PHHO2006US04135

PATIENT
  Age: 13 Year
  Sex: Male
  Weight: 41.6 kg

DRUGS (1)
  1. ICL670A [Suspect]
     Indication: BLOOD IRON INCREASED
     Dosage: 750 MG, QD
     Route: 048
     Dates: start: 20051109

REACTIONS (3)
  - CONVULSION [None]
  - PALLOR [None]
  - TREMOR [None]
